FAERS Safety Report 17868626 (Version 2)
Quarter: 2020Q2

REPORT INFORMATION
  Report Type: Spontaneous
  Country: JP (occurrence: JP)
  Receive Date: 20200606
  Receipt Date: 20200609
  Transmission Date: 20200714
  Serious: Yes (Hospitalization, Other)
  Sender: FDA-Public Use
  Company Number: JP-009507513-2006JPN000151J

PATIENT
  Age: 67 Year
  Sex: Male

DRUGS (1)
  1. KEYTRUDA [Suspect]
     Active Substance: PEMBROLIZUMAB
     Indication: NON-SMALL CELL LUNG CANCER
     Dosage: 200 MILLIGRAM, Q3W
     Route: 041
     Dates: start: 202002, end: 202003

REACTIONS (5)
  - Enterocolitis [Unknown]
  - Dyskinesia [Unknown]
  - Cognitive disorder [Unknown]
  - Meningitis [Unknown]
  - Encephalitis [Unknown]

NARRATIVE: CASE EVENT DATE: 2020
